FAERS Safety Report 9361134 (Version 1)
Quarter: 2013Q2

REPORT INFORMATION
  Report Type: Spontaneous
  Country: TR (occurrence: TR)
  Receive Date: 20130621
  Receipt Date: 20130621
  Transmission Date: 20140414
  Serious: Yes (Hospitalization, Other)
  Sender: FDA-Public Use
  Company Number: TR-BANPHARM-20131423

PATIENT
  Age: 6 Year
  Sex: Male
  Weight: 20 kg

DRUGS (1)
  1. VALPROIC ACID UNKNOWN PRODUCT [Suspect]
     Indication: CONVULSION
     Dosage: 20 MG/KG/D,

REACTIONS (6)
  - Gastritis [Recovered/Resolved]
  - Pancreatitis acute [Recovered/Resolved]
  - Multi-organ failure [Recovered/Resolved]
  - Shock [Recovered/Resolved]
  - Disseminated intravascular coagulation [Recovered/Resolved]
  - Thrombocytopenia [Recovered/Resolved]
